FAERS Safety Report 22329195 (Version 1)
Quarter: 2023Q2

REPORT INFORMATION
  Report Type: Spontaneous
  Country: US (occurrence: None)
  Receive Date: 20230517
  Receipt Date: 20230517
  Transmission Date: 20230721
  Serious: No
  Sender: FDA-Public Use
  Company Number: US-ROCHE-3286425

PATIENT
  Age: 12 Year
  Sex: Male

DRUGS (5)
  1. EVRYSDI [Suspect]
     Active Substance: RISDIPLAM
     Indication: Spinal muscular atrophy
     Route: 048
  2. EVRYSDI [Suspect]
     Active Substance: RISDIPLAM
  3. EVRYSDI [Suspect]
     Active Substance: RISDIPLAM
  4. EVRYSDI [Suspect]
     Active Substance: RISDIPLAM
  5. EVRYSDI [Suspect]
     Active Substance: RISDIPLAM

REACTIONS (1)
  - Alanine aminotransferase increased [Unknown]
